FAERS Safety Report 10676578 (Version 3)
Quarter: 2015Q1

REPORT INFORMATION
  Report Type: Spontaneous
  Country: US (occurrence: US)
  Receive Date: 20141226
  Receipt Date: 20150310
  Transmission Date: 20150720
  Serious: Yes (Other)
  Sender: FDA-Public Use
  Company Number: US-BAYER-2014-185349

PATIENT
  Age: 34 Year
  Sex: Female
  Weight: 101.13 kg

DRUGS (2)
  1. MIRENA [Suspect]
     Active Substance: LEVONORGESTREL
     Indication: CONTRACEPTION
     Dosage: 20 MCG/24HR, CONT
     Route: 015
     Dates: start: 2006, end: 20111010
  2. MIRENA [Suspect]
     Active Substance: LEVONORGESTREL
     Indication: CONTRACEPTION
     Dosage: 20 MCG/24HR, CONT
     Route: 015
     Dates: start: 20111010, end: 20141013

REACTIONS (12)
  - Pain [None]
  - Device defective [None]
  - Pelvic pain [Recovered/Resolved]
  - Embedded device [None]
  - Pyrexia [None]
  - Procedural pain [None]
  - Device difficult to use [None]
  - Procedural pain [Recovered/Resolved]
  - Device dislocation [None]
  - Dyspareunia [Recovered/Resolved]
  - Crying [None]
  - Post procedural haemorrhage [None]

NARRATIVE: CASE EVENT DATE: 2006
